FAERS Safety Report 9398630 (Version 1)
Quarter: 2013Q3

REPORT INFORMATION
  Report Type: Report from Study
  Country: US (occurrence: US)
  Receive Date: 20130712
  Receipt Date: 20130712
  Transmission Date: 20140515
  Serious: Yes (Hospitalization)
  Sender: FDA-Public Use
  Company Number: US-BRISTOL-MYERS SQUIBB COMPANY-15687643

PATIENT
  Age: 60 Year
  Sex: Female

DRUGS (4)
  1. SAXAGLIPTIN [Suspect]
     Indication: TYPE 2 DIABETES MELLITUS
     Dosage: INTERRUPTED ON 25JAN11. REST ON 15APR11.
     Dates: start: 20101015
  2. METFORMIN HCL [Suspect]
     Indication: TYPE 2 DIABETES MELLITUS
     Dates: start: 20110111
  3. NOVOLIN 70/30 [Suspect]
     Indication: TYPE 2 DIABETES MELLITUS
     Dosage: UNK-28OCT10,28OCT10-06DEC10,06DEC10-CONT
  4. ASPIRIN [Concomitant]
     Dosage: 1 DF = TO OR LESS THAN 100MG AND GREATER THAN 100MG ON 11JAN2011,15APR11
     Dates: start: 20101015

REACTIONS (1)
  - Cardiac failure [Recovered/Resolved]
